FAERS Safety Report 5074625-7 (Version None)
Quarter: 2006Q3

REPORT INFORMATION
  Report Type: 
  Country: None (occurrence: None)
  Receive Date: 20060808
  Receipt Date: 20050817
  Transmission Date: 20061208
  Serious: No
  Sender: FDA-Public Use
  Company Number: US-AMGEN-US146837

PATIENT
  Sex: Male

DRUGS (14)
  1. EPOGEN [Suspect]
     Indication: DIALYSIS
     Dates: start: 20031201
  2. IRON [Concomitant]
  3. VITAMIN B-12 [Concomitant]
  4. FOLIC ACID [Concomitant]
  5. FUROSEMIDE [Concomitant]
  6. GLIPIZIDE [Concomitant]
  7. PLAVIX [Concomitant]
  8. ASPIRIN [Concomitant]
  9. LIPITOR [Concomitant]
  10. GEMFIBROZIL [Concomitant]
  11. SENSIPAR [Concomitant]
     Indication: HYPERPARATHYROIDISM SECONDARY
  12. RENAGEL [Concomitant]
  13. LANTUS [Concomitant]
  14. NOVOLIN 70/30 [Concomitant]
     Dates: end: 20050801

REACTIONS (3)
  - FATIGUE [None]
  - FEELING COLD [None]
  - HAEMOGLOBIN DECREASED [None]
